FAERS Safety Report 6879327-X (Version None)
Quarter: 2010Q3

REPORT INFORMATION
  Report Type: 
  Country: None (occurrence: None)
  Receive Date: 20100728
  Receipt Date: 20100722
  Transmission Date: 20110219
  Serious: Yes (Other)
  Sender: FDA-Public Use
  Company Number: US-SANOFI-AVENTIS-2010SA022252

PATIENT
  Age: 74 Year
  Sex: Female
  Weight: 67 kg

DRUGS (12)
  1. MULTAQ [Suspect]
     Indication: ATRIAL FIBRILLATION
     Route: 048
     Dates: start: 20091201, end: 20100511
  2. BISOPROLOL [Concomitant]
     Dosage: 10 MG IN AM AND 10 MG IN PM
  3. LISINOPRIL [Concomitant]
  4. WARFARIN [Concomitant]
     Indication: ANTICOAGULANT THERAPY
  5. SIMVASTATIN [Concomitant]
  6. ALENDRONATE SODIUM [Concomitant]
     Indication: BONE DISORDER
     Route: 048
  7. CITALOPRAM HYDROBROMIDE [Concomitant]
     Indication: NERVOUS SYSTEM DISORDER
  8. NITROFURANTOIN [Concomitant]
  9. FISH OIL [Concomitant]
  10. CALCIUM [Concomitant]
  11. PEPCID [Concomitant]
  12. LACTOBACILLUS ACIDOPHILUS [Concomitant]

REACTIONS (2)
  - ALOPECIA [None]
  - ATRIAL FIBRILLATION [None]
